FAERS Safety Report 5642994-2 (Version None)
Quarter: 2008Q1

REPORT INFORMATION
  Report Type: 
  Country: None (occurrence: None)
  Receive Date: 20080228
  Receipt Date: 20080218
  Transmission Date: 20080703
  Serious: Yes (Other)
  Sender: FDA-Public Use
  Company Number: B0509001A

PATIENT
  Age: 68 Year
  Sex: Female
  Weight: 44 kg

DRUGS (2)
  1. TYKERB [Suspect]
     Dosage: 1250MG PER DAY
     Route: 048
     Dates: start: 20070914, end: 20071025
  2. XELODA [Suspect]
     Dosage: 3000MG PER DAY
     Route: 048
     Dates: start: 20070914, end: 20071022

REACTIONS (4)
  - CHOLESTASIS [None]
  - HEPATOCELLULAR INJURY [None]
  - JAUNDICE [None]
  - LIVER FUNCTION TEST ABNORMAL [None]
